FAERS Safety Report 4637042-7 (Version None)
Quarter: 2005Q2

REPORT INFORMATION
  Report Type: 
  Country: None (occurrence: None)
  Receive Date: 20050414
  Receipt Date: 20050404
  Transmission Date: 20051028
  Serious: Yes (Hospitalization)
  Sender: FDA-Public Use
  Company Number: 2005054662

PATIENT
  Age: 49 Year
  Sex: Female

DRUGS (2)
  1. BEXTRA [Suspect]
     Indication: ARTHRITIS
     Dosage: 10 MG (10 MG, 1 IN 1 D)
     Dates: start: 20040401, end: 20040101
  2. LISINOPRIL [Concomitant]

REACTIONS (5)
  - ARTHRALGIA [None]
  - DIVERTICULITIS [None]
  - JOINT EFFUSION [None]
  - JOINT STIFFNESS [None]
  - SWELLING [None]
